FAERS Safety Report 18842802 (Version 6)
Quarter: 2023Q2

REPORT INFORMATION
  Report Type: Spontaneous
  Country: US (occurrence: US)
  Receive Date: 20210204
  Receipt Date: 20230616
  Transmission Date: 20230722
  Serious: Yes (Other)
  Sender: FDA-Public Use
  Company Number: US-SA-SAC20210129001528

PATIENT
  Age: 54 Year
  Sex: Female

DRUGS (1)
  1. AUBAGIO [Suspect]
     Active Substance: TERIFLUNOMIDE
     Indication: Multiple sclerosis
     Dosage: 14 MG, QD
     Route: 048
     Dates: start: 20200422

REACTIONS (9)
  - Fatigue [Unknown]
  - Bladder disorder [Unknown]
  - Depression [Unknown]
  - Alopecia [Unknown]
  - Micturition disorder [Unknown]
  - Cognitive disorder [Unknown]
  - Balance disorder [Unknown]
  - Movement disorder [Unknown]
  - Product dose omission issue [Unknown]

NARRATIVE: CASE EVENT DATE: 20210128
